FAERS Safety Report 13129228 (Version 1)
Quarter: 2017Q1

REPORT INFORMATION
  Report Type: Spontaneous
  Country: US (occurrence: US)
  Receive Date: 20170117
  Receipt Date: 20170117
  Transmission Date: 20170428
  Serious: No
  Sender: FDA-Public Use
  Company Number: None

PATIENT
  Age: 40 Year
  Sex: Female

DRUGS (1)
  1. BOTOX [Suspect]
     Active Substance: ONABOTULINUMTOXINA
     Indication: MIGRAINE
     Dosage: 200 UNITS   ONE TREATMENT
     Route: 030
     Dates: start: 20160728, end: 20160728

REACTIONS (4)
  - Facial paralysis [None]
  - Product quality issue [None]
  - Deafness unilateral [None]
  - Blindness unilateral [None]

NARRATIVE: CASE EVENT DATE: 20160728
